FAERS Safety Report 7805216-X (Version None)
Quarter: 2011Q4

REPORT INFORMATION
  Report Type: 
  Country: None (occurrence: None)
  Receive Date: 20111010
  Receipt Date: 20111006
  Transmission Date: 20120403
  Serious: Yes (Life-Threatening, Hospitalization)
  Sender: FDA-Public Use
  Company Number: NO-B.I. PHARMACEUTICALS,INC./RIDGEFIELD-2011-SW-00402NO

PATIENT
  Sex: Female

DRUGS (20)
  1. ATROVENT [Concomitant]
     Route: 055
  2. IMODIUM [Concomitant]
     Route: 048
  3. OXAZEPAM [Concomitant]
     Dosage: 22.5 MG
     Route: 048
  4. LANSOPRAZOLE [Concomitant]
     Dosage: 30 MG
     Route: 048
  5. SERETIDE [Concomitant]
     Dosage: 2 ANZ
     Route: 055
  6. VENTOLIN [Concomitant]
     Route: 055
  7. CETIRIZINE HCL [Concomitant]
     Route: 048
  8. PRADAXA [Suspect]
     Indication: ATRIAL FLUTTER
     Dosage: 220 MG
     Route: 048
     Dates: start: 20110513, end: 20110617
  9. POTASSIUM CHLORIDE [Concomitant]
     Dosage: 1500 MG
     Route: 048
  10. SPIRIVA [Concomitant]
  11. VENTOLIN [Concomitant]
     Route: 055
  12. ATROVENT [Concomitant]
     Dosage: 120 MCG
     Route: 055
  13. THEO-DUR [Concomitant]
     Dosage: 400 MG
     Route: 048
  14. BUMETANIDE [Concomitant]
     Dosage: 1 MG
     Route: 048
  15. BISOPROLOL FUMARATE [Concomitant]
     Dosage: 5 MG
     Route: 048
  16. ENALAPRIL MALEATE [Concomitant]
  17. TOLVON [Concomitant]
     Route: 048
  18. ZOPICLONE [Concomitant]
     Route: 048
  19. ASCORBIC ACID (VIT C) [Concomitant]
     Dosage: 250 MG
  20. BRONKYL [Concomitant]
     Dosage: 600 MG
     Route: 048

REACTIONS (1)
  - RENAL FAILURE [None]
